FAERS Safety Report 13929157 (Version 1)
Quarter: 2017Q3

REPORT INFORMATION
  Report Type: Spontaneous
  Country: US (occurrence: US)
  Receive Date: 20170901
  Receipt Date: 20170901
  Transmission Date: 20171127
  Serious: Yes (Disabling)
  Sender: FDA-Public Use
  Company Number: None

PATIENT
  Age: 57 Year
  Sex: Male
  Weight: 69.75 kg

DRUGS (1)
  1. CIPROFLOXACIN HCL 500 MY TAB [Suspect]
     Active Substance: CIPROFLOXACIN HYDROCHLORIDE
     Indication: DIVERTICULITIS
     Dosage: ?          QUANTITY:20 TABLET(S);?
     Route: 048
     Dates: start: 20170807, end: 20170815

REACTIONS (8)
  - Musculoskeletal pain [None]
  - Hypotonia [None]
  - Abdominal pain [None]
  - Weight decreased [None]
  - Cardiac disorder [None]
  - Asthenia [None]
  - Arthropathy [None]
  - Joint range of motion decreased [None]

NARRATIVE: CASE EVENT DATE: 20170815
